FAERS Safety Report 8510984-8 (Version None)
Quarter: 2012Q3

REPORT INFORMATION
  Report Type: 
  Country: None (occurrence: None)
  Receive Date: 20120710
  Receipt Date: 20120710
  Transmission Date: 20120928
  Serious: Yes (Life-Threatening)
  Sender: FDA-Public Use
  Company Number: None

PATIENT
  Age: 34 Year
  Sex: Male
  Weight: 88.4514 kg

DRUGS (7)
  1. VITMAINS [Concomitant]
  2. WELCHOL [Suspect]
     Indication: BLOOD CHOLESTEROL INCREASED
     Dosage: 625 1/DAY PO
     Route: 048
     Dates: start: 20120703, end: 20120704
  3. WELCHOL [Suspect]
     Indication: BLOOD GLUCOSE INCREASED
     Dosage: 625 1/DAY PO
     Route: 048
     Dates: start: 20120703, end: 20120704
  4. WELCHOL [Suspect]
     Indication: BLOOD TRIGLYCERIDES INCREASED
     Dosage: 625 1/DAY PO
     Route: 048
     Dates: start: 20120703, end: 20120704
  5. TRILIPIX [Concomitant]
  6. ACIPHEX [Concomitant]
  7. UNISOM [Concomitant]

REACTIONS (1)
  - VOMITING [None]
